FAERS Safety Report 9199086 (Version 9)
Quarter: 2015Q1

REPORT INFORMATION
  Report Type: Spontaneous
  Country: US (occurrence: US)
  Receive Date: 20130329
  Receipt Date: 20150203
  Transmission Date: 20150721
  Serious: Yes (Hospitalization, Disabling, Other)
  Sender: FDA-Public Use
  Company Number: US-009507513-1102USA00679

PATIENT
  Sex: Male
  Weight: 100.68 kg

DRUGS (4)
  1. PROPECIA [Suspect]
     Active Substance: FINASTERIDE
     Dosage: 1 MG, UNK
     Route: 048
     Dates: start: 200601, end: 200606
  2. PROPECIA [Suspect]
     Active Substance: FINASTERIDE
     Indication: ANDROGENETIC ALOPECIA
     Dosage: UNK
     Route: 048
     Dates: start: 2004, end: 2005
  3. PROPECIA [Suspect]
     Active Substance: FINASTERIDE
     Dosage: UNK
     Route: 048
     Dates: start: 201009, end: 201012
  4. FINASTERIDE. [Suspect]
     Active Substance: FINASTERIDE
     Indication: ALOPECIA
     Dosage: 1 MG, QD
     Route: 048

REACTIONS (36)
  - Male sexual dysfunction [Not Recovered/Not Resolved]
  - Substance-induced mood disorder [Unknown]
  - Neck pain [Unknown]
  - Hyperhidrosis [Unknown]
  - Blood testosterone increased [Unknown]
  - Increased appetite [Unknown]
  - Pruritus [Unknown]
  - Erectile dysfunction [Not Recovered/Not Resolved]
  - Anxiety [Recovered/Resolved]
  - Suicidal ideation [Recovered/Resolved]
  - Fatigue [Recovered/Resolved]
  - Insomnia [Recovered/Resolved]
  - Hypogonadism [Unknown]
  - Acne [Unknown]
  - Depression [Recovered/Resolved]
  - Genital disorder male [Not Recovered/Not Resolved]
  - Splenomegaly [Not Recovered/Not Resolved]
  - Violence-related symptom [Unknown]
  - Feeling abnormal [Unknown]
  - Drug ineffective [Unknown]
  - Substance abuse [Unknown]
  - Abdominal pain [Not Recovered/Not Resolved]
  - Muscle atrophy [Not Recovered/Not Resolved]
  - Disturbance in attention [Unknown]
  - Gastrooesophageal reflux disease [Unknown]
  - Testicular atrophy [Unknown]
  - Food craving [Unknown]
  - Thyroid function test abnormal [Unknown]
  - Infertility [Not Recovered/Not Resolved]
  - Mood disorder due to a general medical condition [Unknown]
  - Blood testosterone decreased [Recovered/Resolved]
  - Gynaecomastia [Not Recovered/Not Resolved]
  - Muscle spasms [Not Recovered/Not Resolved]
  - Constipation [Unknown]
  - Supraventricular tachycardia [Unknown]
  - Anxiety [Unknown]

NARRATIVE: CASE EVENT DATE: 2006
